FAERS Safety Report 11487312 (Version 2)
Quarter: 2015Q3

REPORT INFORMATION
  Report Type: Spontaneous
  Country: DE (occurrence: DE)
  Receive Date: 20150910
  Receipt Date: 20150924
  Transmission Date: 20151125
  Serious: Yes (Other)
  Sender: FDA-Public Use
  Company Number: DE-ACCORD-033438

PATIENT
  Age: 50 Year
  Sex: Male
  Weight: 71 kg

DRUGS (8)
  1. RANITIDINE [Concomitant]
     Active Substance: RANITIDINE\RANITIDINE HYDROCHLORIDE
  2. GEMCITABINE/GEMCITABINE HYDROCHLORIDE [Concomitant]
  3. DEXAMETHASONE. [Concomitant]
     Active Substance: DEXAMETHASONE
     Indication: PREMEDICATION
  4. MANNITOL. [Concomitant]
     Active Substance: MANNITOL
  5. CISPLATIN ACCORD [Suspect]
     Active Substance: CISPLATIN
     Indication: BLADDER CANCER
     Dosage: CISPLATIN ACCORD 100MG/100ML.
     Route: 042
  6. CLEMASTINE [Concomitant]
     Active Substance: CLEMASTINE
  7. GRANISETRON/GRANISETRON HYDROCHLORIDE [Concomitant]
  8. APREPITANT. [Concomitant]
     Active Substance: APREPITANT

REACTIONS (4)
  - Urticaria [Recovered/Resolved]
  - Dyspnoea [Recovered/Resolved]
  - Hypersensitivity [Recovered/Resolved]
  - Generalised erythema [Recovered/Resolved]

NARRATIVE: CASE EVENT DATE: 20150827
